FAERS Safety Report 21368551 (Version 1)
Quarter: 2022Q3

REPORT INFORMATION
  Report Type: Spontaneous
  Country: US (occurrence: US)
  Receive Date: 20220923
  Receipt Date: 20220923
  Transmission Date: 20221027
  Serious: No
  Sender: FDA-Public Use
  Company Number: US-SA-SAC20220916001425

PATIENT
  Age: 25 Year
  Sex: Female
  Weight: 91 kg

DRUGS (1)
  1. DUPIXENT [Suspect]
     Active Substance: DUPILUMAB
     Dosage: 600 MG, 1X
     Route: 058
     Dates: start: 20220912, end: 20220912

REACTIONS (1)
  - Swelling of eyelid [Unknown]

NARRATIVE: CASE EVENT DATE: 20220914
